FAERS Safety Report 6829456-1 (Version None)
Quarter: 2010Q3

REPORT INFORMATION
  Report Type: 
  Country: None (occurrence: None)
  Receive Date: 20100709
  Receipt Date: 20070309
  Transmission Date: 20110219
  Serious: No
  Sender: FDA-Public Use
  Company Number: US-PFIZER INC-2007019939

PATIENT
  Sex: Female
  Weight: 58.97 kg

DRUGS (3)
  1. CHANTIX [Suspect]
     Indication: SMOKING CESSATION THERAPY
     Dates: start: 20070303, end: 20070309
  2. WELLBUTRIN [Concomitant]
     Indication: DEPRESSION
  3. ESTRADERM [Concomitant]
     Route: 061

REACTIONS (2)
  - CHEST DISCOMFORT [None]
  - NAUSEA [None]
